FAERS Safety Report 22004717 (Version 1)
Quarter: 2023Q1

REPORT INFORMATION
  Report Type: Spontaneous
  Country: CN (occurrence: CN)
  Receive Date: 20230217
  Receipt Date: 20230217
  Transmission Date: 20230417
  Serious: Yes (Death, Other)
  Sender: FDA-Public Use
  Company Number: CN-AMGEN-CHNSP2023026021

PATIENT
  Age: 78 Year
  Sex: Male

DRUGS (16)
  1. FILGRASTIM [Suspect]
     Active Substance: FILGRASTIM
     Indication: Prophylaxis
     Dosage: UNK
     Route: 065
  2. METHYLPREDNISOLONE [Concomitant]
     Active Substance: METHYLPREDNISOLONE
  3. TOCILIZUMAB [Concomitant]
     Active Substance: TOCILIZUMAB
  4. CYCLOPHOSPHAMIDE [Concomitant]
     Active Substance: CYCLOPHOSPHAMIDE
  5. ADRIAMYCIN [Concomitant]
     Active Substance: DOXORUBICIN HYDROCHLORIDE
  6. VINCRISTINE [Concomitant]
     Active Substance: VINCRISTINE
  7. PREDNISONE [Concomitant]
     Active Substance: PREDNISONE
  8. GEMCITABINE [Concomitant]
     Active Substance: GEMCITABINE
  9. DEXAMETHASONE [Concomitant]
     Active Substance: DEXAMETHASONE
  10. CISPLATIN [Concomitant]
     Active Substance: CISPLATIN
  11. LENALIDOMIDE [Concomitant]
     Active Substance: LENALIDOMIDE
  12. ZANUBRUTINIB [Concomitant]
     Active Substance: ZANUBRUTINIB
  13. FLUDARABINE [Concomitant]
     Active Substance: FLUDARABINE PHOSPHATE
     Dosage: 25 MILLIGRAM/SQ. METER
  14. CTX 101 [Concomitant]
     Dosage: 300 MILLIGRAM/SQ. METER
  15. ERYTHROPOIETIN [Concomitant]
     Active Substance: ERYTHROPOIETIN
     Dosage: UNK
  16. RITUXIMAB [Concomitant]
     Active Substance: RITUXIMAB
     Dosage: UNK

REACTIONS (3)
  - Septic shock [Fatal]
  - Pneumonia [Fatal]
  - Myelodysplastic syndrome [Fatal]
